FAERS Safety Report 5387675-8 (Version None)
Quarter: 2007Q3

REPORT INFORMATION
  Report Type: 
  Country: None (occurrence: None)
  Receive Date: 20070712
  Receipt Date: 20070705
  Transmission Date: 20080115
  Serious: Yes (Life-Threatening, Hospitalization)
  Sender: FDA-Public Use
  Company Number: 2007SP013544

PATIENT
  Age: 78 Year
  Sex: Male

DRUGS (7)
  1. TEMODAL [Suspect]
     Indication: GLIOBLASTOMA
     Dosage: 180 MG;QD;
     Dates: start: 20070103, end: 20070131
  2. ATENOLOL [Concomitant]
  3. HYZAAR [Concomitant]
  4. PAXIL [Concomitant]
  5. PANTOPRAZOLE SODIUM [Concomitant]
  6. DEXAMETHASONE 0.5MG TAB [Concomitant]
  7. BACTRIM DS [Concomitant]

REACTIONS (6)
  - BONE MARROW FAILURE [None]
  - CANDIDIASIS [None]
  - DIABETES MELLITUS INADEQUATE CONTROL [None]
  - DYSPHAGIA [None]
  - MOUTH ULCERATION [None]
  - PANCYTOPENIA [None]
